FAERS Safety Report 10796614 (Version 2)
Quarter: 2015Q1

REPORT INFORMATION
  Report Type: Report from Study
  Country: CA (occurrence: CA)
  Receive Date: 20150216
  Receipt Date: 20150224
  Transmission Date: 20150721
  Serious: Yes (Other)
  Sender: FDA-Public Use
  Company Number: CA-AMGEN-CANSL2015012786

PATIENT
  Age: 72 Year
  Sex: Female

DRUGS (3)
  1. FORTEO [Concomitant]
     Active Substance: TERIPARATIDE
  2. PROLIA [Suspect]
     Active Substance: DENOSUMAB
     Indication: OSTEOPOROSIS POSTMENOPAUSAL
     Dosage: 60 MG, Q6MO
     Route: 058
     Dates: start: 20131202
  3. LYRICA [Concomitant]
     Active Substance: PREGABALIN
     Dosage: 7.5 MG, BID

REACTIONS (8)
  - Pain [Not Recovered/Not Resolved]
  - Hypercalciuria [Unknown]
  - Eye disorder [Unknown]
  - Parkinson^s disease [Unknown]
  - Scoliosis [Unknown]
  - Functional gastrointestinal disorder [Unknown]
  - Back pain [Not Recovered/Not Resolved]
  - Pain in extremity [Not Recovered/Not Resolved]

NARRATIVE: CASE EVENT DATE: 201412
